FAERS Safety Report 6140569-2 (Version None)
Quarter: 2009Q2

REPORT INFORMATION
  Report Type: 
  Country: None (occurrence: None)
  Receive Date: 20090402
  Receipt Date: 20080612
  Transmission Date: 20091009
  Serious: Yes (Death)
  Sender: FDA-Public Use
  Company Number: US-ASTRAZENECA-2006UW21617

PATIENT
  Age: 20080 Day
  Sex: Female
  Weight: 103 kg

DRUGS (28)
  1. SEROQUEL [Suspect]
     Indication: DEPRESSION
     Route: 048
     Dates: start: 20040101, end: 20050101
  2. SEROQUEL [Suspect]
     Indication: BIPOLAR DISORDER
     Route: 048
     Dates: start: 20040101, end: 20050101
  3. SEROQUEL [Suspect]
     Dosage: 25MG - 200MG
     Route: 048
     Dates: start: 20040101
  4. SEROQUEL [Suspect]
     Dosage: 25MG - 200MG
     Route: 048
     Dates: start: 20040101
  5. ZYPREXA [Concomitant]
  6. TRAZODONE [Concomitant]
     Dates: start: 20051022
  7. CITALOPRAM [Concomitant]
     Dates: start: 20051022
  8. LAMICTAL [Concomitant]
     Dates: start: 20051022
  9. SKELAXIN [Concomitant]
     Dates: start: 20051022
  10. KEPPRA [Concomitant]
     Dates: start: 20051022
  11. NOVOLIN [Concomitant]
     Dates: start: 20051022
  12. RANITIDINE [Concomitant]
     Dates: start: 20051022
  13. FLUCONAZOLE [Concomitant]
     Dates: start: 20051026
  14. NORVASC [Concomitant]
     Dates: start: 20051106
  15. ZOCOR [Concomitant]
     Dates: start: 20051107
  16. METFORMIN HCL [Concomitant]
     Dates: start: 20051125
  17. BENZOTROPIN [Concomitant]
     Dates: start: 20040102
  18. PROPRANOLOL [Concomitant]
  19. ORPHENADRINE CITRATE [Concomitant]
     Dates: start: 20040515
  20. NAPROXEN [Concomitant]
     Dates: start: 20040515
  21. SINGULAIR [Concomitant]
     Dates: start: 20040727
  22. COMBIENT [Concomitant]
     Dates: start: 20040908
  23. FAMOTIDINE [Concomitant]
     Dates: start: 20050331
  24. MYTUSSIN [Concomitant]
  25. AMITRIPTYLINE HCL [Concomitant]
  26. DIOVAN [Concomitant]
  27. PRAVACHOL [Concomitant]
  28. SEREVENT [Concomitant]

REACTIONS (2)
  - DEATH [None]
  - DIABETES MELLITUS [None]
